FAERS Safety Report 5297006-X (Version None)
Quarter: 2007Q1

REPORT INFORMATION
  Report Type: 
  Country: None (occurrence: None)
  Receive Date: 20070201
  Receipt Date: 20061006
  Transmission Date: 20070707
  Serious: No
  Sender: FDA-Public Use
  Company Number: 2006PV022635

PATIENT
  Age: 51 Year
  Sex: Female
  Weight: 96.6162 kg

DRUGS (5)
  1. BYETTA [Suspect]
     Indication: DIABETES MELLITUS NON-INSULIN-DEPENDENT
     Dosage: SEE IMAGE
     Route: 058
     Dates: start: 20060915, end: 20061001
  2. BYETTA [Suspect]
     Indication: DIABETES MELLITUS NON-INSULIN-DEPENDENT
     Dosage: SEE IMAGE
     Route: 058
     Dates: start: 20061001
  3. LANTUS [Concomitant]
  4. HUMALOG [Concomitant]
  5. LEXAPRO [Concomitant]

REACTIONS (8)
  - BLOOD GLUCOSE INCREASED [None]
  - DECREASED APPETITE [None]
  - DEPRESSION SUICIDAL [None]
  - LISTLESS [None]
  - NAUSEA [None]
  - SUICIDAL IDEATION [None]
  - TEARFULNESS [None]
  - WEIGHT DECREASED [None]
